FAERS Safety Report 13152427 (Version 4)
Quarter: 2017Q3

REPORT INFORMATION
  Report Type: Spontaneous
  Country: KR (occurrence: KR)
  Receive Date: 20170125
  Receipt Date: 20170824
  Transmission Date: 20171127
  Serious: Yes (Hospitalization)
  Sender: FDA-Public Use
  Company Number: KR-009507513-1701KOR010251

PATIENT
  Age: 47 Year
  Sex: Male
  Weight: 62.8 kg

DRUGS (18)
  1. ALOXI [Concomitant]
     Active Substance: PALONOSETRON HYDROCHLORIDE
     Indication: PROPHYLAXIS OF NAUSEA AND VOMITING
     Dosage: 0.25 MG, ONCE
     Route: 042
     Dates: start: 20161031, end: 20161031
  2. BARACLUDE [Concomitant]
     Active Substance: ENTECAVIR
     Indication: HEPATITIS B
     Dosage: 1 TABLET, QD
     Route: 048
     Dates: start: 20161024
  3. DUPHALAC [Concomitant]
     Active Substance: LACTULOSE
     Indication: PROPHYLAXIS
     Dosage: 30 ML, TID
     Route: 048
     Dates: start: 20161031, end: 20161109
  4. DEXAMETHASONE. [Concomitant]
     Active Substance: DEXAMETHASONE
     Indication: PROPHYLAXIS OF NAUSEA AND VOMITING
     Dosage: 0.5 MG, QD
     Route: 048
     Dates: start: 20161031, end: 20161103
  5. HARTMANN D [Concomitant]
     Indication: NUTRITIONAL SUPPLEMENTATION
     Dosage: 1000 ML, QD
     Route: 042
     Dates: start: 20161024, end: 20161025
  6. NEXIUM I.V. [Concomitant]
     Active Substance: ESOMEPRAZOLE SODIUM
     Indication: GASTROOESOPHAGEAL REFLUX PROPHYLAXIS
     Dosage: 40 MG, BID
     Route: 042
     Dates: start: 20161031, end: 20161031
  7. PETHIDINE INJECTION BP [Concomitant]
     Indication: PAIN PROPHYLAXIS
     Dosage: 50 MG, ONCE
     Route: 042
     Dates: start: 20161031, end: 20161104
  8. TRIDOL (TRAMADOL HYDROCHLORIDE) [Concomitant]
     Indication: PAIN PROPHYLAXIS
     Dosage: 50 MG, TID
     Route: 030
     Dates: start: 20161031, end: 20161104
  9. GASTER [Concomitant]
     Active Substance: FAMOTIDINE
     Indication: PROPHYLAXIS AGAINST GASTROINTESTINAL ULCER
     Dosage: 1 TABLET, BID
     Route: 048
     Dates: start: 20161024, end: 20161027
  10. URSA TABLETS [Concomitant]
     Indication: NUTRITIONAL SUPPLEMENTATION
     Dosage: 1 TABLET, BID
     Route: 048
     Dates: start: 20161028
  11. UFT [Concomitant]
     Active Substance: TEGAFUR\URACIL
     Indication: HEPATOCELLULAR CARCINOMA
     Dosage: 1 CAPSULE TID, CYCLE: 1
     Route: 048
     Dates: start: 20161024, end: 20161027
  12. NEXIUM [Concomitant]
     Active Substance: ESOMEPRAZOLE MAGNESIUM
     Indication: GASTROOESOPHAGEAL REFLUX PROPHYLAXIS
     Dosage: 20 MG, QD
     Route: 048
     Dates: start: 20161028
  13. EMEND (FOSAPREPITANT DIMEGLUMINE) [Suspect]
     Active Substance: FOSAPREPITANT DIMEGLUMINE
     Indication: PROPHYLAXIS OF NAUSEA AND VOMITING
     Dosage: 150 MG, ONCE
     Route: 042
     Dates: start: 20161031, end: 20161031
  14. MAGMIL [Concomitant]
     Active Substance: MAGNESIUM HYDROXIDE
     Indication: CONSTIPATION PROPHYLAXIS
     Dosage: 1 TABLET, QD
     Route: 048
     Dates: start: 20161024, end: 20161027
  15. ILDONG ARONAMIN C PLUS [Concomitant]
     Indication: NUTRITIONAL SUPPLEMENTATION
     Dosage: 1 TABLET, QD
     Route: 048
     Dates: start: 20161028, end: 20161101
  16. MACPERAN [Concomitant]
     Active Substance: METOCLOPRAMIDE HYDROCHLORIDE
     Indication: PROPHYLAXIS OF NAUSEA AND VOMITING
     Dosage: 10 MG, TID
     Route: 042
     Dates: start: 20161031, end: 20161104
  17. PETHIDINE INJECTION BP [Concomitant]
     Dosage: 50 MG, QD
     Route: 030
     Dates: start: 20161031, end: 20161031
  18. CISPLAN [Concomitant]
     Active Substance: CISPLATIN
     Indication: HEPATOCELLULAR CARCINOMA
     Dosage: 120 MG ONCE, CYCLE: 1
     Route: 013
     Dates: start: 20161031, end: 20161031

REACTIONS (1)
  - Pyrexia [Recovered/Resolved]

NARRATIVE: CASE EVENT DATE: 20161101
